FAERS Safety Report 8988199 (Version 1)
Quarter: 2012Q4

REPORT INFORMATION
  Report Type: 
  Country: US (occurrence: US)
  Receive Date: 20121227
  Receipt Date: 20121227
  Transmission Date: 20130627
  Serious: Yes (Other)
  Sender: FDA-Public Use
  Company Number: US-ASTELLAS-2012US012537

PATIENT
  Age: 43 Year
  Sex: Female

DRUGS (2)
  1. MYRBETRIQ [Suspect]
     Indication: PRODUCT USED FOR UNKNOWN INDICATION
     Dosage: 25 mg, UID/QD
     Route: 065
     Dates: start: 20121201, end: 20121205
  2. MYRBETRIQ [Suspect]
     Dosage: 25 mg, UID/QD
     Route: 065
     Dates: start: 20121212, end: 20121214

REACTIONS (7)
  - Haematochezia [Unknown]
  - Viral infection [Unknown]
  - Diarrhoea [Unknown]
  - Flatulence [Recovered/Resolved]
  - Abdominal distension [Recovered/Resolved]
  - Constipation [Unknown]
  - Vomiting [Unknown]
